FAERS Safety Report 4355206-7 (Version None)
Quarter: 2004Q2

REPORT INFORMATION
  Report Type: 
  Country: None (occurrence: None)
  Receive Date: 20040506
  Receipt Date: 20040423
  Transmission Date: 20050107
  Serious: Yes (Death)
  Sender: FDA-Public Use
  Company Number: 2004S1001193

PATIENT
  Age: 83 Year
  Sex: Female

DRUGS (6)
  1. CLOZAPINE [Suspect]
     Indication: PARANOIA
     Dosage: 50 MG QD, ORAL
     Route: 048
     Dates: start: 20021201
  2. LEVOTHYROXINE [Concomitant]
  3. FUROSEMIDE [Concomitant]
  4. PERGOLIDE MESYLATE [Concomitant]
  5. CARBIDOPA AND LEVODOPA [Concomitant]
  6. POTASSIUM CHLORIDE [Concomitant]

REACTIONS (1)
  - DEATH [None]
